FAERS Safety Report 10025412 (Version 1)
Quarter: 2014Q1

REPORT INFORMATION
  Report Type: Spontaneous
  Country: US (occurrence: US)
  Receive Date: 20140320
  Receipt Date: 20140320
  Transmission Date: 20141002
  Serious: No
  Sender: FDA-Public Use
  Company Number: US-009507513-1403USA007726

PATIENT
  Sex: Female

DRUGS (3)
  1. MIRALAX [Suspect]
     Indication: PRODUCT USED FOR UNKNOWN INDICATION
     Dosage: UNK UNK, UNKNOWN
     Route: 048
  2. LINZESS [Suspect]
     Indication: CONSTIPATION
     Dosage: 145 MICROGRAM, QD
  3. LINZESS [Suspect]
     Dosage: 145 MICROGRAM, QD

REACTIONS (1)
  - Diarrhoea [Recovered/Resolved]
